FAERS Safety Report 19299686 (Version 1)
Quarter: 2021Q2

REPORT INFORMATION
  Report Type: Spontaneous
  Country: JP (occurrence: JP)
  Receive Date: 20210525
  Receipt Date: 20210525
  Transmission Date: 20210717
  Serious: Yes (Hospitalization, Other)
  Sender: FDA-Public Use
  Company Number: JP-ROCHE-2833932

PATIENT
  Age: 72 Year
  Sex: Female
  Weight: 49.6 kg

DRUGS (16)
  1. TRASTUZUMAB BIOSIMILAR 1 [Suspect]
     Active Substance: TRASTUZUMAB
     Dosage: 6 MILLIGRAM/KILOGRAM
     Route: 041
     Dates: end: 20210330
  2. PACLITAXEL. [Suspect]
     Active Substance: PACLITAXEL
     Dosage: 40 MILLIGRAM/SQ. METER
     Route: 041
     Dates: end: 20210406
  3. PACLITAXEL. [Suspect]
     Active Substance: PACLITAXEL
     Indication: BREAST CANCER
     Dosage: 80 MILLIGRAM/SQ. METER, QD
     Route: 041
     Dates: start: 20201230, end: 20201230
  4. DOMPERIDONE [Concomitant]
     Active Substance: DOMPERIDONE
     Dosage: UNK
     Route: 048
     Dates: start: 20210101
  5. FENTANYL CITRATE. [Concomitant]
     Active Substance: FENTANYL CITRATE
     Dosage: UNK
     Route: 062
     Dates: start: 20210114
  6. PERJETA [Suspect]
     Active Substance: PERTUZUMAB
     Indication: BREAST CANCER
     Dosage: (FORM STRENGTH: 420MG/14ML)
     Route: 041
     Dates: start: 20201228, end: 20201228
  7. DEXART [Concomitant]
     Active Substance: DEXAMETHASONE SODIUM PHOSPHATE
     Dosage: UNK
     Route: 042
     Dates: start: 20201230, end: 20210406
  8. FAMOTIDINE. [Concomitant]
     Active Substance: FAMOTIDINE
     Dosage: UNK
     Route: 042
     Dates: start: 20201230, end: 20210406
  9. FEBURIC [Concomitant]
     Active Substance: FEBUXOSTAT
     Dosage: UNK
     Route: 048
     Dates: start: 20201222
  10. PERJETA [Suspect]
     Active Substance: PERTUZUMAB
     Route: 041
     Dates: end: 20210330
  11. RANMARK [Concomitant]
     Active Substance: DENOSUMAB
     Dosage: UNK, QD
     Route: 058
     Dates: start: 20210316, end: 20210316
  12. DEXAMETHASONE SODIUM PHOSPHATE. [Concomitant]
     Active Substance: DEXAMETHASONE SODIUM PHOSPHATE
     Dosage: UNK
     Dates: start: 20201230, end: 20210406
  13. LANSOPRAZOLE. [Concomitant]
     Active Substance: LANSOPRAZOLE
     Dosage: 0.25 UNK
     Route: 048
     Dates: start: 20201219
  14. TRASTUZUMAB BIOSIMILAR 1 [Suspect]
     Active Substance: TRASTUZUMAB
     Indication: BREAST CANCER
     Dosage: 8 MILLIGRAM/KILOGRAM, QD
     Route: 041
     Dates: start: 20201228, end: 20201228
  15. POLARAMINE [Concomitant]
     Active Substance: DEXCHLORPHENIRAMINE MALEATE
     Dosage: UNK
     Route: 042
     Dates: start: 20201230, end: 20210406
  16. DENOTAS [Concomitant]
     Active Substance: CALCIUM CARBONATE\CHOLECALCIFEROL\MAGNESIUM CARBONATE
     Dosage: UNK
     Route: 048
     Dates: start: 20210316

REACTIONS (2)
  - Cytopenia [Unknown]
  - Interstitial lung disease [Recovering/Resolving]

NARRATIVE: CASE EVENT DATE: 20210412
